FAERS Safety Report 4352419-5 (Version None)
Quarter: 2004Q2

REPORT INFORMATION
  Report Type: 
  Country: None (occurrence: None)
  Receive Date: 20040428
  Receipt Date: 20040413
  Transmission Date: 20050107
  Serious: Yes (Hospitalization)
  Sender: FDA-Public Use
  Company Number: 2004SE02129

PATIENT
  Age: 51 Year
  Sex: Female

DRUGS (2)
  1. ATACAND [Suspect]
     Indication: MIGRAINE
     Dosage: 16 MG DAILY PO
     Route: 048
     Dates: start: 20040129
  2. ATACAND [Suspect]
     Indication: MIGRAINE
     Dosage: 8 MG DAILY PO
     Route: 048
     Dates: start: 20040201

REACTIONS (5)
  - BACK PAIN [None]
  - BLOOD PRESSURE DECREASED [None]
  - CHEST PAIN [None]
  - HEART RATE DECREASED [None]
  - PAIN IN EXTREMITY [None]
